FAERS Safety Report 19994194 (Version 3)
Quarter: 2022Q1

REPORT INFORMATION
  Report Type: Report from Study
  Country: AU (occurrence: AU)
  Receive Date: 20211026
  Receipt Date: 20220103
  Transmission Date: 20220424
  Serious: Yes (Hospitalization, Other)
  Sender: FDA-Public Use
  Company Number: AU-BIOGEN-2020BI00954837

PATIENT
  Age: 70 Year
  Sex: Female

DRUGS (20)
  1. TECFIDERA [Suspect]
     Active Substance: DIMETHYL FUMARATE
     Indication: Multiple sclerosis
     Route: 048
     Dates: start: 20201211
  2. TECFIDERA [Suspect]
     Active Substance: DIMETHYL FUMARATE
     Route: 048
     Dates: start: 20201204, end: 20201210
  3. TECFIDERA [Suspect]
     Active Substance: DIMETHYL FUMARATE
     Route: 048
     Dates: start: 20201204, end: 20201217
  4. TECFIDERA [Suspect]
     Active Substance: DIMETHYL FUMARATE
     Dosage: 120MG AM AND 240MG PM
     Route: 048
     Dates: start: 20201218
  5. TECFIDERA [Suspect]
     Active Substance: DIMETHYL FUMARATE
     Route: 048
     Dates: start: 20201204
  6. TECFIDERA [Suspect]
     Active Substance: DIMETHYL FUMARATE
     Route: 048
     Dates: start: 20201204, end: 20211126
  7. ASPIRIN [Concomitant]
     Active Substance: ASPIRIN
     Indication: Product used for unknown indication
     Route: 065
  8. LYRICA [Concomitant]
     Active Substance: PREGABALIN
     Indication: Product used for unknown indication
     Dosage: 75 AM 300MG PM
     Route: 065
     Dates: start: 2008
  9. BRILINTA [Concomitant]
     Active Substance: TICAGRELOR
     Indication: Product used for unknown indication
     Route: 065
  10. MOXONIDINE [Concomitant]
     Active Substance: MOXONIDINE
     Indication: Product used for unknown indication
     Route: 065
  11. METFORMIN HYDROCHLORIDE [Concomitant]
     Active Substance: METFORMIN HYDROCHLORIDE
     Indication: Product used for unknown indication
     Route: 065
  12. EUTROXSIG [Concomitant]
     Active Substance: LEVOTHYROXINE SODIUM
     Indication: Product used for unknown indication
     Route: 065
  13. KEFLEX [Concomitant]
     Active Substance: CEPHALEXIN
     Indication: Cellulitis
     Route: 065
  14. KEFLEX [Concomitant]
     Active Substance: CEPHALEXIN
     Route: 048
  15. Maltofer [Concomitant]
     Indication: Iron deficiency
     Route: 065
  16. Ostelin [Concomitant]
     Indication: Constipation
     Dosage: 3 X WEEK
     Route: 065
  17. ACULAR [Concomitant]
     Active Substance: KETOROLAC TROMETHAMINE
     Indication: Macular oedema
     Route: 065
  18. ACULAR [Concomitant]
     Active Substance: KETOROLAC TROMETHAMINE
     Route: 065
  19. Trovasc [Concomitant]
     Indication: Product used for unknown indication
     Route: 065
  20. Trovasc [Concomitant]
     Route: 065

REACTIONS (20)
  - Gastric polyps [Unknown]
  - Large intestine polyp [Unknown]
  - Squamous cell carcinoma [Unknown]
  - Haematochezia [Not Recovered/Not Resolved]
  - Dyspepsia [Not Recovered/Not Resolved]
  - Paraesthesia [Unknown]
  - Peripheral swelling [Not Recovered/Not Resolved]
  - Ear congestion [Not Recovered/Not Resolved]
  - Fatigue [Not Recovered/Not Resolved]
  - Gastrooesophageal reflux disease [Unknown]
  - Fall [Recovered/Resolved]
  - Oesophagitis [Unknown]
  - Blood iron decreased [Not Recovered/Not Resolved]
  - Haemoglobin decreased [Not Recovered/Not Resolved]
  - Renal impairment [Not Recovered/Not Resolved]
  - White blood cell count abnormal [Not Recovered/Not Resolved]
  - Hot flush [Not Recovered/Not Resolved]
  - Nausea [Unknown]
  - Gastritis [Unknown]
  - Abdominal pain [Recovered/Resolved]

NARRATIVE: CASE EVENT DATE: 20201204
